FAERS Safety Report 15793357 (Version 1)
Quarter: 2019Q1

REPORT INFORMATION
  Report Type: Spontaneous
  Country: US (occurrence: US)
  Receive Date: 20190103
  Receipt Date: 20190103
  Transmission Date: 20190417
  Serious: No
  Sender: FDA-Public Use
  Company Number: None

PATIENT

DRUGS (1)
  1. DILAUDID [Suspect]
     Active Substance: HYDROMORPHONE HYDROCHLORIDE

REACTIONS (11)
  - Unresponsive to stimuli [None]
  - Lip exfoliation [None]
  - Overdose [None]
  - Hyperhidrosis [None]
  - Muscle twitching [None]
  - Anxiety [None]
  - Balance disorder [None]
  - Spinal pain [None]
  - Depression [None]
  - Gait disturbance [None]
  - Pain [None]

NARRATIVE: CASE EVENT DATE: 2017
